FAERS Safety Report 6811414-4 (Version None)
Quarter: 2010Q2

REPORT INFORMATION
  Report Type: 
  Country: None (occurrence: None)
  Receive Date: 20100630
  Receipt Date: 20100524
  Transmission Date: 20101027
  Serious: No
  Sender: FDA-Public Use
  Company Number: US-AMGEN-KDL414287

PATIENT
  Sex: Male

DRUGS (11)
  1. PROCRIT [Suspect]
     Indication: ANAEMIA
     Dates: start: 20100101
  2. INVIRASE [Concomitant]
     Route: 048
  3. EPIVIR [Concomitant]
     Route: 048
  4. ATENOLOL [Concomitant]
     Route: 048
  5. FELODIPINE [Concomitant]
  6. CALCITRIOL [Concomitant]
     Route: 048
  7. BUMETANIDE [Concomitant]
     Route: 048
  8. ALLOPURINOL [Concomitant]
     Route: 048
  9. SODIUM BICARBONATE [Concomitant]
     Route: 048
  10. VITAMIN D [Concomitant]
  11. INSULIN [Concomitant]
     Dates: start: 20090101

REACTIONS (10)
  - DEHYDRATION [None]
  - DIARRHOEA [None]
  - EOSINOPHIL COUNT INCREASED [None]
  - EYE INFECTION [None]
  - EYELID BLEEDING [None]
  - FULL BLOOD COUNT DECREASED [None]
  - HORDEOLUM [None]
  - INTERNATIONAL NORMALISED RATIO INCREASED [None]
  - PLATELET COUNT DECREASED [None]
  - PROTHROMBIN TIME PROLONGED [None]
